FAERS Safety Report 14174724 (Version 1)
Quarter: 2017Q4

REPORT INFORMATION
  Report Type: Spontaneous
  Country: US (occurrence: US)
  Receive Date: 20171109
  Receipt Date: 20171109
  Transmission Date: 20180321
  Serious: No
  Sender: FDA-Public Use
  Company Number: US-ALLERGAN-1708094US

PATIENT
  Sex: Male

DRUGS (3)
  1. AZOPT [Concomitant]
     Active Substance: BRINZOLAMIDE
     Indication: GLAUCOMA
     Dosage: UNK
     Route: 047
     Dates: end: 20150218
  2. TRAVOPROST. [Concomitant]
     Active Substance: TRAVOPROST
  3. ALPHAGAN P [Suspect]
     Active Substance: BRIMONIDINE TARTRATE
     Indication: GLAUCOMA
     Dosage: UNK
     Route: 047
     Dates: end: 20150218

REACTIONS (1)
  - Intraocular pressure increased [Unknown]
